FAERS Safety Report 7800475-1 (Version None)
Quarter: 2011Q4

REPORT INFORMATION
  Report Type: 
  Country: None (occurrence: None)
  Receive Date: 20111006
  Receipt Date: 20111003
  Transmission Date: 20120403
  Serious: Yes (Other)
  Sender: FDA-Public Use
  Company Number: US-PFIZER INC-2011235869

PATIENT
  Sex: Female
  Weight: 55.3 kg

DRUGS (2)
  1. PREMPRO [Suspect]
     Indication: HOT FLUSH
     Dosage: 0.625/2.5 MG, 1X/DAY
     Route: 048
     Dates: start: 20110928, end: 20111001
  2. METRONIDAZOLE [Concomitant]
     Indication: VAGINAL INFECTION
     Dosage: UNK, 1X/DAY
     Route: 067

REACTIONS (6)
  - CHEST PAIN [None]
  - VOMITING [None]
  - HYPERTENSION [None]
  - ABDOMINAL PAIN UPPER [None]
  - NAUSEA [None]
  - HYPERSENSITIVITY [None]
